FAERS Safety Report 23692255 (Version 2)
Quarter: 2024Q2

REPORT INFORMATION
  Report Type: Spontaneous
  Country: RU (occurrence: RU)
  Receive Date: 20240401
  Receipt Date: 20240502
  Transmission Date: 20240715
  Serious: Yes (Hospitalization)
  Sender: FDA-Public Use
  Company Number: RU-AMERICAN REGENT INC-2024001162

PATIENT
  Age: 27 Year
  Sex: Female

DRUGS (1)
  1. FERINJECT [Suspect]
     Active Substance: FERRIC CARBOXYMALTOSE
     Indication: Iron deficiency anaemia
     Dosage: THE PATIENT WAS SCHEDULED TO BE ADMINISTERED WITH FERINJECT AT A DOSE OF 1000 MG, DILUTED IN 250 ML

REACTIONS (4)
  - General physical health deterioration [Recovered/Resolved]
  - Anxiety [Recovered/Resolved]
  - Loss of consciousness [Recovered/Resolved]
  - Blood pressure decreased [Recovered/Resolved]
